FAERS Safety Report 5979952-4 (Version None)
Quarter: 2008Q4

REPORT INFORMATION
  Report Type: 
  Country: None (occurrence: None)
  Receive Date: 20081205
  Receipt Date: 20081128
  Transmission Date: 20090506
  Serious: Yes (Death)
  Sender: FDA-Public Use
  Company Number: JP-ASTRAZENECA-2008SE05577

PATIENT
  Age: 79 Year
  Sex: Male
  Weight: 52 kg

DRUGS (17)
  1. BLOPRESS [Suspect]
     Indication: CARDIAC FAILURE CHRONIC
     Route: 048
     Dates: start: 20070714, end: 20080831
  2. LASIX [Concomitant]
     Indication: CARDIAC FAILURE CHRONIC
     Route: 048
     Dates: start: 20000801, end: 20080831
  3. SIGMART [Concomitant]
     Indication: ANGINA PECTORIS
     Route: 048
     Dates: start: 20000801, end: 20080831
  4. MEXITIL [Concomitant]
     Indication: VENTRICULAR EXTRASYSTOLES
     Route: 048
     Dates: start: 20000801, end: 20080831
  5. SUCRALFATE [Concomitant]
     Indication: GASTRITIS
     Route: 048
     Dates: start: 20000801, end: 20080831
  6. MARZULENE S [Concomitant]
     Indication: GASTRITIS
     Route: 048
     Dates: start: 20000801, end: 20080831
  7. MAGNESIUM OXIDE [Concomitant]
     Indication: CONSTIPATION
     Route: 048
     Dates: start: 20000801, end: 20080831
  8. ASPIRIN [Concomitant]
     Indication: ISCHAEMIC HEART DISEASE PROPHYLAXIS
     Route: 048
     Dates: start: 20000801, end: 20080831
  9. HERBESSER R [Concomitant]
     Indication: ANGINA PECTORIS
     Route: 048
     Dates: start: 20000801, end: 20080831
  10. FRANDOL TAPE S [Concomitant]
     Indication: ANGINA PECTORIS
     Route: 062
     Dates: start: 20000801, end: 20080831
  11. PLETAL [Concomitant]
     Indication: ARTERIOSCLEROSIS OBLITERANS
     Route: 048
     Dates: start: 20020807, end: 20080831
  12. STARSIS [Concomitant]
     Indication: DIABETES MELLITUS
     Route: 048
     Dates: start: 20000801, end: 20080831
  13. AMOBAN [Concomitant]
     Indication: INSOMNIA
     Route: 048
     Dates: start: 20000801, end: 20080831
  14. WARFARIN SODIUM [Concomitant]
     Indication: THROMBOSIS PROPHYLAXIS
     Route: 048
     Dates: start: 20000801, end: 20080831
  15. OPALMON [Concomitant]
     Indication: ARTERIOSCLEROSIS OBLITERANS
     Route: 048
     Dates: start: 20030430, end: 20080831
  16. LIPLE [Concomitant]
     Indication: ARTERIOSCLEROSIS OBLITERANS
     Route: 042
     Dates: start: 20070710, end: 20071016
  17. NOVOLIN 30R FLEXPEN [Concomitant]
     Indication: DIABETES MELLITUS
     Route: 042
     Dates: start: 20000801, end: 20080831

REACTIONS (2)
  - CHONDROCALCINOSIS PYROPHOSPHATE [None]
  - SUDDEN DEATH [None]
